FAERS Safety Report 11008493 (Version 2)
Quarter: 2015Q2

REPORT INFORMATION
  Report Type: Spontaneous
  Country: US (occurrence: None)
  Receive Date: 20150313
  Receipt Date: 20150506
  Transmission Date: 20150821
  Serious: Yes (Life-Threatening, Hospitalization, Other)
  Sender: FDA-Public Use
  Company Number: ADR-2015-00328

PATIENT
  Age: 56 Year
  Sex: Male

DRUGS (4)
  1. COMPOUNDED MORPHINE INTRATHECAL [Suspect]
     Active Substance: MORPHINE
     Dosage: SEE B5
  2. NORCO [Suspect]
     Active Substance: ACETAMINOPHEN\HYDROCODONE BITARTRATE
     Route: 048
  3. GRALISE [Suspect]
     Active Substance: GABAPENTIN
     Route: 048
  4. COMPOUNDED BACLOFEN INTRATHECAL [Suspect]
     Active Substance: BACLOFEN
     Indication: MUSCLE SPASTICITY
     Dosage: SEE B5

REACTIONS (18)
  - Hypertension [None]
  - Decubitus ulcer [None]
  - Device battery issue [None]
  - Sepsis [None]
  - Muscle spasticity [None]
  - Condition aggravated [None]
  - Drug withdrawal syndrome [None]
  - Hypertonia [None]
  - Device failure [None]
  - Device breakage [None]
  - Implant site infection [None]
  - Urinary tract infection [None]
  - Weight decreased [None]
  - Pocket erosion [None]
  - Wound infection staphylococcal [None]
  - Staphylococcal bacteraemia [None]
  - Device extrusion [None]
  - Skin infection [None]
